FAERS Safety Report 22163898 (Version 1)
Quarter: 2023Q2

REPORT INFORMATION
  Report Type: Report from Study
  Country: CA (occurrence: CA)
  Receive Date: 20230401
  Receipt Date: 20230401
  Transmission Date: 20230722
  Serious: Yes (Other)
  Sender: FDA-Public Use
  Company Number: CA-002147023-NVSC2022CA254605

PATIENT
  Age: 45 Year
  Sex: Female

DRUGS (2)
  1. HYRIMOZ [Suspect]
     Active Substance: ADALIMUMAB-ADAZ
     Indication: Colitis ulcerative
     Dosage: 40 MG (EVERY 10 DAYS)
     Route: 058
     Dates: start: 20220601
  2. HYRIMOZ [Suspect]
     Active Substance: ADALIMUMAB-ADAZ
     Dosage: 40 MG, QW
     Route: 058
     Dates: start: 20221119

REACTIONS (5)
  - Colitis ulcerative [Unknown]
  - Faecal calprotectin increased [Unknown]
  - Sciatica [Recovering/Resolving]
  - Pain [Recovering/Resolving]
  - Off label use [Not Recovered/Not Resolved]
